FAERS Safety Report 16857568 (Version 1)
Quarter: 2019Q3

REPORT INFORMATION
  Report Type: Spontaneous
  Country: CA (occurrence: CA)
  Receive Date: 20190926
  Receipt Date: 20190926
  Transmission Date: 20191005
  Serious: Yes (Disabling)
  Sender: FDA-Public Use
  Company Number: CA-PFIZER INC-2019411792

PATIENT
  Age: 64 Year
  Sex: Male
  Weight: 63.95 kg

DRUGS (1)
  1. LEVOFLOXACIN. [Suspect]
     Active Substance: LEVOFLOXACIN
     Indication: LUNG INFECTION
     Dosage: 500 MG, 1X/DAY

REACTIONS (4)
  - Pain in extremity [Unknown]
  - Lacrimation increased [Unknown]
  - Tendon disorder [Unknown]
  - Peripheral swelling [Unknown]
